FAERS Safety Report 22599761 (Version 1)
Quarter: 2023Q2

REPORT INFORMATION
  Report Type: Spontaneous
  Country: ES (occurrence: ES)
  Receive Date: 20230614
  Receipt Date: 20230614
  Transmission Date: 20230721
  Serious: Yes (Other)
  Sender: FDA-Public Use
  Company Number: ES-AMAROX PHARMA GMBH-AMR2023ES01424

PATIENT
  Age: 76 Year
  Sex: Male

DRUGS (11)
  1. DOCETAXEL [Interacting]
     Active Substance: DOCETAXEL
     Indication: Adenocarcinoma gastric
     Dosage: 50 MG/M2 ON DAY 1 OF 14 DAY CYCLE
     Route: 065
  2. OXALIPLATIN [Interacting]
     Active Substance: OXALIPLATIN
     Indication: Adenocarcinoma gastric
     Dosage: 85 MG/M2, CYCLIC (DAY 1 OF THE 14-DAY CYCLE)
     Route: 065
  3. LEUCOVORIN [Interacting]
     Active Substance: LEUCOVORIN
     Indication: Adenocarcinoma gastric
     Dosage: 200 MG/M2, CYCLIC (DAY 1 OF THE 14-DAY CYCLE)
     Route: 065
  4. FLUOROURACIL [Interacting]
     Active Substance: FLUOROURACIL
     Indication: Adenocarcinoma gastric
     Dosage: 2600 MG/M2, CYCLIC (CONTINUOUS 24 HOUR INFUSION DAY 1 OF 14 DAY CYCLE)
     Route: 065
  5. ONDANSETRON HYDROCHLORIDE [Interacting]
     Active Substance: ONDANSETRON HYDROCHLORIDE
     Indication: Product used for unknown indication
     Dosage: 8 MG, 3X/DAY 1-1-1 FOR THREE DAYS FROM START OF NEOADJUVANT SYSTEMIC CHEMOTHERAPY
     Route: 065
  6. METAMIZOLE [Interacting]
     Active Substance: METAMIZOLE
     Indication: Pain
     Dosage: 575 MG, 3X/DAY EVERY 8 HOURS ALTERNATED WITH PARACETAMOL
     Route: 065
  7. DEXAMETHASONE [Concomitant]
     Active Substance: DEXAMETHASONE
     Indication: Antiemetic supportive care
     Dosage: 8 MG, 1X/DAY 1-0-0 THREE DAYS FROM START OF NEOADJUVANT SYSTEMIC CHEMOTHERAPY
     Route: 065
  8. OMEPRAZOLE [Concomitant]
     Active Substance: OMEPRAZOLE
     Indication: Supportive care
     Dosage: 20 MG, 2X/DAY 1-0-1
     Route: 065
  9. FILGRASTIM [Concomitant]
     Active Substance: FILGRASTIM
     Indication: Prophylaxis
     Dosage: 300 MCG, 4 DAYS PRIOR TO START OF NEOADJUVANT SYSTEMIC CHEMOTHERAPY
     Route: 065
  10. GRANISETRON [Concomitant]
     Active Substance: GRANISETRON
     Indication: Antiemetic supportive care
     Dosage: UNK
     Route: 065
  11. ACETAMINOPHEN [Concomitant]
     Active Substance: ACETAMINOPHEN
     Indication: Pain
     Dosage: 1 G, 3X/DAY, AS NEEDED ALTERNATED WITH METAMIZOLE

REACTIONS (5)
  - Toxic skin eruption [Not Recovered/Not Resolved]
  - Drug interaction [Unknown]
  - Palmar-plantar erythrodysaesthesia syndrome [Unknown]
  - Diarrhoea [Recovered/Resolved]
  - Mucosal inflammation [Recovered/Resolved]
